FAERS Safety Report 19899992 (Version 1)
Quarter: 2021Q3

REPORT INFORMATION
  Report Type: Spontaneous
  Country: DE (occurrence: DE)
  Receive Date: 20210929
  Receipt Date: 20210929
  Transmission Date: 20211014
  Serious: Yes (Hospitalization)
  Sender: FDA-Public Use
  Company Number: DE-MYLANLABS-2021M1066518

PATIENT
  Age: 65 Year
  Sex: Female

DRUGS (13)
  1. CALCIUM DURA [Concomitant]
     Dosage: 1000 MG, 1?0?0?0, BRAUSETABLETTEN
     Route: 048
  2. RISPERIDON [Concomitant]
     Active Substance: RISPERIDONE
     Dosage: 1 MG, 1?0?2?0, TABLETTEN
     Route: 048
  3. AMIODARONE [Suspect]
     Active Substance: AMIODARONE
     Indication: PRODUCT USED FOR UNKNOWN INDICATION
     Dosage: 200 MG, 1?0?0?0, TABLETTEN
     Route: 048
  4. IPRAMOL [Concomitant]
     Active Substance: ALBUTEROL SULFATE\IPRATROPIUM BROMIDE
     Dosage: 1?1?1?0, DOSIERAEROSOL
     Route: 055
  5. TORASEMID [Concomitant]
     Active Substance: TORSEMIDE
     Dosage: 10 MG, 1?1?0?0, TABLETTEN
     Route: 048
  6. KALIUMCITRAT [Concomitant]
     Active Substance: POTASSIUM CITRATE
     Dosage: 40 MMOL, 1?0?0?0, TABLETTEN
     Route: 048
  7. L?THYROX HEXAL [Concomitant]
     Active Substance: LEVOTHYROXINE SODIUM
     Dosage: 125 ?G, 1?0?0?0, TABLETTEN
     Route: 048
  8. METOPROLOL. [Concomitant]
     Active Substance: METOPROLOL
     Dosage: 47.5 MG, 1?0?1?0, TABLETTEN
     Route: 048
  9. PIPAMPERON [Concomitant]
     Active Substance: PIPAMPERONE HYDROCHLORIDE
     Dosage: 40 MG, 0?0?1?0, TABLETTEN
     Route: 048
  10. VALPROAT ARISTO [Concomitant]
     Dosage: 300 MG, 0?0?1?0, TABLETTEN
     Route: 048
  11. DABIGATRAN [Suspect]
     Active Substance: DABIGATRAN
     Indication: PRODUCT USED FOR UNKNOWN INDICATION
     Dosage: 150 MG, 1?0?1?0, TABLETTEN
     Route: 048
  12. MEXILETINE [Suspect]
     Active Substance: MEXILETINE
     Indication: PRODUCT USED FOR UNKNOWN INDICATION
     Dosage: 200 MG, 1?1?1?1, TABLETTEN
     Route: 048
  13. SIMVASTATIN. [Concomitant]
     Active Substance: SIMVASTATIN
     Dosage: 20 MG, 0?0?3?0, TABLETTEN
     Route: 048

REACTIONS (4)
  - General physical health deterioration [Unknown]
  - Hypotension [Unknown]
  - Haematochezia [Unknown]
  - Retrograde amnesia [Unknown]
